FAERS Safety Report 4330457-6 (Version None)
Quarter: 2004Q1

REPORT INFORMATION
  Report Type: 
  Country: None (occurrence: None)
  Receive Date: 20040330
  Receipt Date: 20040317
  Transmission Date: 20041129
  Serious: Yes (Hospitalization)
  Sender: FDA-Public Use
  Company Number: BE-JNJFOC-20040304155

PATIENT
  Age: 86 Year
  Sex: Female

DRUGS (10)
  1. REMICADE [Suspect]
     Indication: RHEUMATOID ARTHRITIS
     Dosage: 3 MG/KG, INTRAVENOUS
     Route: 042
     Dates: start: 20030917, end: 20031125
  2. METHOTREXATE [Suspect]
  3. CORDARONE [Concomitant]
  4. CELEBREX [Concomitant]
  5. EMCONCOR (BISOPROLOL) [Concomitant]
  6. LORAZEPAM [Concomitant]
  7. PREDNISOLONE [Concomitant]
  8. ACETYLSALICYLIC ACID SRT [Concomitant]
  9. LAXIS (FUROSEMIDE) [Concomitant]
  10. RANITIDINE [Concomitant]

REACTIONS (5)
  - CARDIAC FAILURE [None]
  - CARDIOMEGALY [None]
  - HYPONATRAEMIA [None]
  - LUMBAR VERTEBRAL FRACTURE [None]
  - OSTEOMYELITIS [None]
